FAERS Safety Report 25339515 (Version 1)
Quarter: 2025Q2

REPORT INFORMATION
  Report Type: Spontaneous
  Country: CA (occurrence: CA)
  Receive Date: 20250521
  Receipt Date: 20250521
  Transmission Date: 20250716
  Serious: Yes (Other)
  Sender: TEVA
  Company Number: CA-TEVA-VS-3332761

PATIENT
  Age: 64 Year
  Sex: Female
  Weight: 70.76 kg

DRUGS (3)
  1. ESTRADIOL [Suspect]
     Active Substance: ESTRADIOL
     Indication: Hot flush
     Route: 065
     Dates: start: 2023
  2. AMLODIPINE [Concomitant]
     Active Substance: AMLODIPINE BESYLATE
     Indication: Hypertension
     Route: 065
  3. PREMARIN [Suspect]
     Active Substance: ESTROGENS, CONJUGATED
     Indication: Hot flush
     Dosage: 1.25 MG TABLETS, RECEIVES ONCE A MONTH 30 DAY SUPPLY, 1 PILL AT NIGHT BEFORE PILL
     Route: 065
     Dates: start: 2025

REACTIONS (4)
  - Spinal operation [Unknown]
  - Hot flush [Unknown]
  - Arthralgia [Recovering/Resolving]
  - Breast pain [Recovering/Resolving]

NARRATIVE: CASE EVENT DATE: 20240601
